FAERS Safety Report 9437870 (Version 1)
Quarter: 2013Q3

REPORT INFORMATION
  Report Type: Spontaneous
  Country: US (occurrence: US)
  Receive Date: 20130802
  Receipt Date: 20130802
  Transmission Date: 20140515
  Serious: No
  Sender: FDA-Public Use
  Company Number: US-BRISTOL-MYERS SQUIBB COMPANY-18711176

PATIENT
  Age: 77 Year
  Sex: Female
  Weight: 79.36 kg

DRUGS (1)
  1. WARFARIN SODIUM [Suspect]
     Indication: ATRIAL FIBRILLATION
     Dosage: 2.5 MG AND 5 MG
     Route: 048
     Dates: start: 20130220

REACTIONS (1)
  - Joint swelling [Recovered/Resolved]
